FAERS Safety Report 13005949 (Version 3)
Quarter: 2016Q4

REPORT INFORMATION
  Report Type: Report from Study
  Country: JP (occurrence: JP)
  Receive Date: 20161207
  Receipt Date: 20161215
  Transmission Date: 20170207
  Serious: Yes (Life-Threatening, Hospitalization)
  Sender: FDA-Public Use
  Company Number: JP-009507513-1612JPN003268

PATIENT
  Age: 80 Year
  Sex: Male

DRUGS (9)
  1. ACTOS [Concomitant]
     Active Substance: PIOGLITAZONE HYDROCHLORIDE
     Indication: DIABETES MELLITUS
     Dosage: UNK
     Route: 048
     Dates: end: 20160207
  2. PLETAAL [Concomitant]
     Active Substance: CILOSTAZOL
     Dosage: UNK
     Dates: end: 20160207
  3. METGLUCO [Concomitant]
     Active Substance: METFORMIN HYDROCHLORIDE
     Dosage: UNK
     Dates: end: 20160207
  4. GLUBES [Concomitant]
     Active Substance: MITIGLINIDE CALCIUM HYDRATE\VOGLIBOSE
     Indication: DIABETES MELLITUS
     Dosage: UNK
     Route: 048
     Dates: end: 20160207
  5. FRANDOL TAPE S [Concomitant]
     Active Substance: ISOSORBIDE DINITRATE
     Dosage: UNK
     Dates: end: 20160207
  6. PLAVIX [Concomitant]
     Active Substance: CLOPIDOGREL BISULFATE
     Dosage: UNK
     Dates: end: 20160207
  7. GLACTIV [Suspect]
     Active Substance: SITAGLIPTIN
     Indication: TYPE 2 DIABETES MELLITUS
     Dosage: 50 MG, QD
     Route: 048
     Dates: start: 20150401, end: 20160204
  8. NORVASC [Concomitant]
     Active Substance: AMLODIPINE BESYLATE
     Dosage: UNK
     Dates: end: 20160207
  9. LIVALO [Concomitant]
     Active Substance: PITAVASTATIN CALCIUM
     Dosage: UNK
     Dates: end: 20160207

REACTIONS (1)
  - Pancreatic carcinoma [Not Recovered/Not Resolved]

NARRATIVE: CASE EVENT DATE: 20160204
